FAERS Safety Report 8343024-4 (Version None)
Quarter: 2012Q2

REPORT INFORMATION
  Report Type: 
  Country: None (occurrence: None)
  Receive Date: 20120508
  Receipt Date: 20120502
  Transmission Date: 20120825
  Serious: Yes (Hospitalization, Disabling, Other)
  Sender: FDA-Public Use
  Company Number: PHHO2012DE002433

PATIENT
  Sex: Female
  Weight: 90.4 kg

DRUGS (9)
  1. EXJADE [Suspect]
     Indication: IRON OVERLOAD
     Dosage: 500 MG, QD
     Route: 048
     Dates: start: 20110817, end: 20110927
  2. CITALOPRAM HYDROBROMIDE [Concomitant]
     Dosage: UNK
     Dates: start: 20110415
  3. BISOPROLOL FUMARATE [Concomitant]
     Dosage: 5 MG, QD
     Dates: start: 20110815
  4. METFORMIN HCL [Suspect]
     Indication: DIABETES MELLITUS
     Dosage: 1000 MG, BID
     Dates: start: 20110706, end: 20111106
  5. LEVOTHYROXINE SODIUM [Concomitant]
     Dosage: UNK
     Dates: start: 20110415
  6. EXJADE [Suspect]
     Dosage: 1000 MG, QD
     Dates: start: 20110928, end: 20111107
  7. PANTO [Concomitant]
     Dosage: 20/40 MG AM
     Dates: start: 20111108
  8. RAMIPRIL [Concomitant]
     Dosage: 5 MG, QID
     Dates: start: 20110817
  9. INSULIN NOVO RAPITARD [Concomitant]
     Dosage: UNK
     Route: 058
     Dates: start: 20110803, end: 20111106

REACTIONS (5)
  - UPPER RESPIRATORY TRACT INFECTION [None]
  - HYPOGLYCAEMIA [None]
  - RENAL FAILURE [None]
  - ACIDOSIS [None]
  - HEPATIC ENCEPHALOPATHY [None]
